FAERS Safety Report 21004195 (Version 1)
Quarter: 2022Q2

REPORT INFORMATION
  Report Type: Spontaneous
  Country: US (occurrence: US)
  Receive Date: 20220624
  Receipt Date: 20220624
  Transmission Date: 20220721
  Serious: No
  Sender: FDA-Public Use
  Company Number: US-AVEO ONCOLOGY-2022-AVEO-US000120

PATIENT

DRUGS (14)
  1. FOTIVDA [Suspect]
     Active Substance: TIVOZANIB HYDROCHLORIDE
     Indication: Renal cell carcinoma
     Dosage: 1.34 MG DAILY FOR 21 DAYS THEN 7 DAYS OFF
     Route: 048
     Dates: start: 20220327
  2. Metagenix Diarrhea supplement [Concomitant]
  3. L-glutamine [Concomitant]
  4. ULTRAFLORA BALANCE [Concomitant]
  5. VITAMINS [Concomitant]
     Active Substance: VITAMINS
  6. CLONIDINE [Concomitant]
     Active Substance: CLONIDINE
  7. GLUCOSAMINE [Concomitant]
     Active Substance: GLUCOSAMINE
  8. HYDRALAZINE [Concomitant]
     Active Substance: HYDRALAZINE HYDROCHLORIDE
  9. FERROUS SULFATE [Concomitant]
     Active Substance: FERROUS SULFATE
  10. KRILL OIL [Concomitant]
     Active Substance: DIETARY SUPPLEMENT\KRILL OIL
  11. PENICILLIN [Concomitant]
     Active Substance: PENICILLIN
  12. VALSARTAN [Concomitant]
     Active Substance: VALSARTAN
  13. VITAMIN B-COMPLEX [Concomitant]
     Active Substance: DEXPANTHENOL\NIACINAMIDE\PYRIDOXINE HYDROCHLORIDE\RIBOFLAVIN 5^-PHOSPHATE SODIUM\THIAMINE HYDROCHLOR
  14. CHLORHEXIDINE [Concomitant]
     Active Substance: CHLORHEXIDINE

REACTIONS (2)
  - Cough [Unknown]
  - Pruritus [Unknown]

NARRATIVE: CASE EVENT DATE: 20220405
